FAERS Safety Report 10990346 (Version 3)
Quarter: 2015Q3

REPORT INFORMATION
  Report Type: Spontaneous
  Country: US (occurrence: US)
  Receive Date: 20150406
  Receipt Date: 20150803
  Transmission Date: 20151125
  Serious: Yes (Hospitalization, Other)
  Sender: FDA-Public Use
  Company Number: US-009507513-1504USA001441

PATIENT
  Sex: Female
  Weight: 99.77 kg

DRUGS (1)
  1. JANUMET [Suspect]
     Active Substance: METFORMIN HYDROCHLORIDE\SITAGLIPTIN PHOSPHATE
     Indication: TYPE 2 DIABETES MELLITUS
     Dosage: 1000MG/50MG
     Route: 048
     Dates: start: 20140306, end: 20150330

REACTIONS (10)
  - Pancreatitis [Recovered/Resolved]
  - Hyperlipidaemia [Unknown]
  - Pyelonephritis acute [Unknown]
  - Arthritis [Unknown]
  - Uterine dilation and curettage [Unknown]
  - Hypertension [Unknown]
  - Uterine leiomyoma [Unknown]
  - Renal cyst [Unknown]
  - Small intestinal obstruction [Unknown]
  - Hypokalaemia [Unknown]

NARRATIVE: CASE EVENT DATE: 201412
